FAERS Safety Report 24360120 (Version 1)
Quarter: 2024Q3

REPORT INFORMATION
  Report Type: Spontaneous
  Country: US (occurrence: US)
  Receive Date: 20240925
  Receipt Date: 20240925
  Transmission Date: 20241016
  Serious: Yes (Other)
  Sender: AMGEN
  Company Number: US-AMGEN-USASP2024187684

PATIENT

DRUGS (6)
  1. BEVACIZUMAB [Suspect]
     Active Substance: BEVACIZUMAB
     Indication: Colorectal cancer metastatic
     Dosage: 5 MILLIGRAM/KILOGRAM, DAYS 1 AND 15 OF EACH 28-DAY TREATMENT CYCLE
     Route: 042
  2. BEVACIZUMAB [Suspect]
     Active Substance: BEVACIZUMAB
     Dosage: PRECLUDING DOSING EVERY 2 WEEKS
     Route: 042
  3. FILGRASTIM [Suspect]
     Active Substance: FILGRASTIM
     Indication: Neutropenia
     Dosage: (INITIATED 24 H AFTER THE LAST TAS-102 DOSE AND FOR UP TO 5 DAYS)
     Route: 065
  4. IRINOTECAN [Suspect]
     Active Substance: IRINOTECAN
     Indication: Colorectal cancer metastatic
     Dosage: 180 MILLIGRAM/SQ. METER
     Route: 042
  5. IRINOTECAN [Suspect]
     Active Substance: IRINOTECAN
     Dosage: 25 MILLIGRAM/SQ. METER, BID, ON DAYS 2-6 AND 16-20 OF EACH CYCLE
     Route: 048
  6. IRINOTECAN [Suspect]
     Active Substance: IRINOTECAN
     Dosage: PRECLUDING DOSING EVERY 2 WEEKS
     Route: 065

REACTIONS (32)
  - Colitis [Unknown]
  - Colorectal cancer metastatic [Unknown]
  - Anaemia [Unknown]
  - White blood cell count decreased [Unknown]
  - Neutrophil count decreased [Unknown]
  - Lymphocyte count decreased [Unknown]
  - Platelet count decreased [Unknown]
  - Nausea [Unknown]
  - Hypertension [Unknown]
  - Abdominal pain [Unknown]
  - Diarrhoea [Unknown]
  - Stomatitis [Unknown]
  - Neutropenia [Unknown]
  - Febrile neutropenia [Unknown]
  - Fatigue [Unknown]
  - Urinary tract infection [Unknown]
  - Decreased appetite [Unknown]
  - Dehydration [Unknown]
  - Dermatitis acneiform [Unknown]
  - Hypotension [Unknown]
  - Proctitis [Unknown]
  - Insomnia [Unknown]
  - Rhinorrhoea [Unknown]
  - Alopecia [Unknown]
  - Dizziness [Unknown]
  - Infusion related reaction [Unknown]
  - Vomiting [Unknown]
  - Constipation [Unknown]
  - Weight decreased [Unknown]
  - Dysgeusia [Unknown]
  - Proteinuria [Unknown]
  - Epistaxis [Unknown]
